FAERS Safety Report 14763637 (Version 1)
Quarter: 2018Q2

REPORT INFORMATION
  Report Type: Spontaneous
  Country: US (occurrence: US)
  Receive Date: 20180416
  Receipt Date: 20180416
  Transmission Date: 20180711
  Serious: Yes (Hospitalization, Other)
  Sender: FDA-Public Use
  Company Number: US-JNJFOC-20180414281

PATIENT
  Age: 54 Year
  Sex: Female

DRUGS (1)
  1. INVOKANA [Suspect]
     Active Substance: CANAGLIFLOZIN
     Indication: PRODUCT USED FOR UNKNOWN INDICATION
     Route: 048
     Dates: start: 20150209, end: 20160129

REACTIONS (6)
  - Osteomyelitis [Recovering/Resolving]
  - Toe amputation [Recovering/Resolving]
  - Sepsis [Unknown]
  - Finger amputation [Recovering/Resolving]
  - Cellulitis staphylococcal [Recovering/Resolving]
  - Cellulitis [Unknown]

NARRATIVE: CASE EVENT DATE: 20150727
